FAERS Safety Report 5323206-6 (Version None)
Quarter: 2007Q2

REPORT INFORMATION
  Report Type: 
  Country: None (occurrence: None)
  Receive Date: 20070220
  Receipt Date: 20061113
  Transmission Date: 20071010
  Serious: No
  Sender: FDA-Public Use
  Company Number: WAES 0611USA04321

PATIENT
  Age: 82 Year
  Sex: Female

DRUGS (7)
  1. JANUVIA [Suspect]
     Indication: DIABETES MELLITUS NON-INSULIN-DEPENDENT
     Dosage: 100 MG/DAILY/PO
     Route: 048
     Dates: start: 20061104
  2. LANOXIN [Concomitant]
  3. NORVASC [Concomitant]
  4. ZOCOR [Concomitant]
  5. [THERAPY UNSPECIFIED] [Concomitant]
  6. FUROSEMIDE [Concomitant]
  7. POTASSIUM (UNSPECIFIED) [Concomitant]

REACTIONS (4)
  - DRUG INEFFECTIVE [None]
  - LARYNGITIS [None]
  - NASOPHARYNGITIS [None]
  - RHINORRHOEA [None]
